FAERS Safety Report 19758521 (Version 1)
Quarter: 2021Q3

REPORT INFORMATION
  Report Type: Spontaneous
  Country: ES (occurrence: ES)
  Receive Date: 20210827
  Receipt Date: 20210827
  Transmission Date: 20211014
  Serious: Yes (Hospitalization, Other)
  Sender: FDA-Public Use
  Company Number: ES-BAUSCH-BL-2021-028219

PATIENT
  Age: 58 Year
  Sex: Male
  Weight: 49.5 kg

DRUGS (6)
  1. ACICLOVIR (201A) [Suspect]
     Active Substance: ACYCLOVIR
     Indication: PRODUCT USED FOR UNKNOWN INDICATION
     Route: 065
     Dates: start: 2021, end: 20210805
  2. POSACONAZOL (2996A) [Suspect]
     Active Substance: POSACONAZOLE
     Indication: PRODUCT USED FOR UNKNOWN INDICATION
     Route: 065
     Dates: start: 2021
  3. LINEZOLID AUROVITAS SPAIN 600 MG COMPRIMIDOS RECUBIERTOS CON PELICULA [Suspect]
     Active Substance: LINEZOLID
     Indication: BACTERAEMIA
     Dosage: LINEZOLID AUROVITAS SPAIN 600 MG COMPRIMIDOS RECUBIERTOS CON PELICULA EFG, 10 COMPRIMIDOS
     Route: 048
     Dates: start: 20210722, end: 20210804
  4. SULFAMETOXAZOL/TRIMETOPRIMA 800 MG/160 MG COMPRIMIDO [Suspect]
     Active Substance: SULFAMETHOXAZOLE\TRIMETHOPRIM
     Indication: PRODUCT USED FOR UNKNOWN INDICATION
     Route: 065
     Dates: start: 2021, end: 20210811
  5. TACROLIMUS (2694A) [Concomitant]
     Active Substance: TACROLIMUS
     Indication: GRAFT VERSUS HOST DISEASE IN GASTROINTESTINAL TRACT
     Dates: start: 20210804, end: 20210811
  6. GANCICLOVIR (2370A) [Concomitant]
     Active Substance: GANCICLOVIR
     Indication: PRODUCT USED FOR UNKNOWN INDICATION
     Dosage: 5 MG/KG CADA 12 HORAS
     Route: 040
     Dates: start: 20210805

REACTIONS (2)
  - Anaemia [Not Recovered/Not Resolved]
  - Thrombocytopenia [Not Recovered/Not Resolved]

NARRATIVE: CASE EVENT DATE: 20210804
